FAERS Safety Report 13465223 (Version 4)
Quarter: 2017Q2

REPORT INFORMATION
  Report Type: Report from Study
  Country: DE (occurrence: DE)
  Receive Date: 20170421
  Receipt Date: 20170516
  Transmission Date: 20170830
  Serious: Yes (Other)
  Sender: FDA-Public Use
  Company Number: DE-ROCHE-1893090

PATIENT
  Age: 68 Year
  Sex: Female
  Weight: 59 kg

DRUGS (15)
  1. PERTUZUMAB [Suspect]
     Active Substance: PERTUZUMAB
     Indication: BREAST CANCER
     Route: 042
     Dates: start: 20150519, end: 20150519
  2. HERCEPTIN [Concomitant]
     Active Substance: TRASTUZUMAB
     Route: 042
     Dates: start: 20150811, end: 20151013
  3. HERCEPTIN [Concomitant]
     Active Substance: TRASTUZUMAB
     Route: 042
     Dates: start: 20150609, end: 20150721
  4. ALOXI [Concomitant]
     Active Substance: PALONOSETRON HYDROCHLORIDE
     Indication: VOMITING
     Dosage: DAY ONE OF EACH CYCLE
     Route: 042
     Dates: start: 20150519, end: 20151013
  5. DOCETAXEL. [Concomitant]
     Active Substance: DOCETAXEL
     Route: 042
     Dates: start: 20150922, end: 20151013
  6. GRANOCYTE [Concomitant]
     Active Substance: LENOGRASTIM
     Indication: LEUKOPENIA
     Route: 058
     Dates: start: 20150616, end: 20150909
  7. GRANOCYTE [Concomitant]
     Active Substance: LENOGRASTIM
     Route: 058
     Dates: start: 20150613, end: 20150819
  8. PERTUZUMAB [Suspect]
     Active Substance: PERTUZUMAB
     Route: 042
     Dates: start: 20150609, end: 20160527
  9. HERCEPTIN [Concomitant]
     Active Substance: TRASTUZUMAB
     Indication: BREAST CANCER
     Route: 042
     Dates: start: 20150519, end: 20150519
  10. FILGRASTIM [Concomitant]
     Active Substance: FILGRASTIM
     Indication: LEUKOPENIA
     Route: 058
     Dates: start: 20150526, end: 20150526
  11. DEXAMETHASON [Concomitant]
     Active Substance: DEXAMETHASONE
     Indication: VOMITING
     Dosage: DAY ONE OF EACH CYCLE
     Route: 042
     Dates: start: 20150519
  12. DEXAMETHASON [Concomitant]
     Active Substance: DEXAMETHASONE
     Dosage: DAY TWO OF EACH CYCLE
     Route: 048
     Dates: start: 20150519, end: 20151015
  13. DOCETAXEL. [Concomitant]
     Active Substance: DOCETAXEL
     Indication: BREAST CANCER
     Route: 042
     Dates: start: 20150519, end: 20150901
  14. HERCEPTIN [Concomitant]
     Active Substance: TRASTUZUMAB
     Route: 042
     Dates: start: 20151103, end: 20160527
  15. MCP [Concomitant]
     Active Substance: METOCLOPRAMIDE HYDROCHLORIDE
     Indication: VOMITING
     Route: 048
     Dates: start: 20151006, end: 20151020

REACTIONS (8)
  - Oedema [Recovered/Resolved]
  - Metastases to central nervous system [Not Recovered/Not Resolved]
  - Onychoclasis [Unknown]
  - Leukopenia [Recovered/Resolved]
  - Dizziness [Recovering/Resolving]
  - Eye movement disorder [Not Recovered/Not Resolved]
  - Fatigue [Not Recovered/Not Resolved]
  - Polyneuropathy [Not Recovered/Not Resolved]

NARRATIVE: CASE EVENT DATE: 20150707
